FAERS Safety Report 10724591 (Version 1)
Quarter: 2015Q1

REPORT INFORMATION
  Report Type: Spontaneous
  Country: US (occurrence: None)
  Receive Date: 20150116
  Receipt Date: 20150116
  Transmission Date: 20150721
  Serious: No
  Sender: FDA-Public Use
  Company Number: None

PATIENT
  Age: 56 Year
  Sex: Male
  Weight: 116 kg

DRUGS (3)
  1. 5-FLUOROURACIL (5-FU) [Suspect]
     Active Substance: FLUOROURACIL
     Dates: end: 20140609
  2. ELOXATIN [Suspect]
     Active Substance: OXALIPLATIN
     Dates: end: 20140609
  3. LEUCOVORIN CALCIUM. [Suspect]
     Active Substance: LEUCOVORIN CALCIUM
     Dates: end: 20140609

REACTIONS (3)
  - Drug dose omission [None]
  - Blood glucose increased [None]
  - Treatment noncompliance [None]

NARRATIVE: CASE EVENT DATE: 20140707
